FAERS Safety Report 12761695 (Version 1)
Quarter: 2016Q3

REPORT INFORMATION
  Report Type: Other
  Country: US (occurrence: US)
  Receive Date: 20160920
  Receipt Date: 20160920
  Transmission Date: 20161109
  Serious: Yes (Hospitalization)
  Sender: FDA-Public Use
  Company Number: US-LUPIN PHARMACEUTICALS INC.-2016-04191

PATIENT
  Age: 61 Year
  Sex: Female

DRUGS (3)
  1. BUPRENORPHINE+NALOXONE [Concomitant]
     Active Substance: BUPRENORPHINE\NALOXONE
     Indication: TOXICITY TO VARIOUS AGENTS
     Route: 048
  2. LORAZEPAM. [Suspect]
     Active Substance: LORAZEPAM
     Indication: ANXIETY
     Dosage: 2 MG
     Route: 065
  3. LORAZEPAM. [Suspect]
     Active Substance: LORAZEPAM
     Route: 065

REACTIONS (3)
  - Catatonia [Recovered/Resolved]
  - Withdrawal syndrome [Recovered/Resolved]
  - Stress cardiomyopathy [Recovered/Resolved]
